FAERS Safety Report 15111398 (Version 1)
Quarter: 2018Q3

REPORT INFORMATION
  Report Type: Spontaneous
  Country: NL (occurrence: NL)
  Receive Date: 20180705
  Receipt Date: 20180705
  Transmission Date: 20181010
  Serious: Yes (Death, Other)
  Sender: FDA-Public Use
  Company Number: NL-NAPPMUNDI-GBR-2018-0057131

PATIENT
  Age: 81 Year
  Sex: Male

DRUGS (2)
  1. OXYCODONE HYDROCHLORIDE. [Suspect]
     Active Substance: OXYCODONE HYDROCHLORIDE
     Indication: PRODUCT USED FOR UNKNOWN INDICATION
     Dosage: UNK
     Route: 065
  2. ZOLADEX [Suspect]
     Active Substance: GOSERELIN ACETATE
     Indication: PROSTATE CANCER
     Dosage: 11 MG, UNK
     Route: 058
     Dates: start: 20050909

REACTIONS (13)
  - Metastases to pelvis [Unknown]
  - Malignant neoplasm progression [Unknown]
  - Somnolence [Unknown]
  - Nausea [Unknown]
  - General physical health deterioration [Unknown]
  - Inappropriate schedule of drug administration [Unknown]
  - Dizziness [Unknown]
  - Metastases to bone [Unknown]
  - Cancer pain [Unknown]
  - Weight decreased [Unknown]
  - Metastases to spine [Unknown]
  - Pancreatic neoplasm [Unknown]
  - Prostate cancer metastatic [Fatal]
